FAERS Safety Report 14846326 (Version 1)
Quarter: 2018Q2

REPORT INFORMATION
  Report Type: Spontaneous
  Country: GB (occurrence: GB)
  Receive Date: 20180504
  Receipt Date: 20180504
  Transmission Date: 20180711
  Serious: Yes (Death, Hospitalization, Disabling, Other)
  Sender: FDA-Public Use
  Company Number: GB-TEVA-2018-GB-889289

PATIENT
  Age: 69 Year
  Sex: Female

DRUGS (6)
  1. SPIRONOLACTONE. [Concomitant]
     Active Substance: SPIRONOLACTONE
     Indication: OEDEMA
     Dosage: 200 MILLIGRAM DAILY;
     Route: 048
  2. RIFAXIMIN. [Concomitant]
     Active Substance: RIFAXIMIN
     Dosage: 1100 MILLIGRAM DAILY;
     Route: 048
  3. CARVEDILOL. [Concomitant]
     Active Substance: CARVEDILOL
     Indication: VARICOSE VEIN
     Dosage: 12.5 MILLIGRAM DAILY;
     Route: 048
  4. AMLODIPINE [Concomitant]
     Active Substance: AMLODIPINE BESYLATE
     Indication: HYPERTENSION
     Dosage: 5 MILLIGRAM DAILY;
     Route: 048
  5. HUMULIN NOS [Concomitant]
     Active Substance: INSULIN HUMAN
     Dosage: AS DIRECTED
     Route: 058
  6. FUROSEMIDE. [Suspect]
     Active Substance: FUROSEMIDE
     Indication: OEDEMA
     Route: 065

REACTIONS (4)
  - General physical health deterioration [Fatal]
  - Cardiac failure [Fatal]
  - Renal impairment [Fatal]
  - Pneumonia [Fatal]

NARRATIVE: CASE EVENT DATE: 20151002
